FAERS Safety Report 12065814 (Version 1)
Quarter: 2016Q1

REPORT INFORMATION
  Report Type: Spontaneous
  Country: US (occurrence: US)
  Receive Date: 20160211
  Receipt Date: 20160211
  Transmission Date: 20160526
  Serious: No
  Sender: FDA-Public Use
  Company Number: US-BAYER-2016-021153

PATIENT
  Sex: Male

DRUGS (2)
  1. ALEVE [Suspect]
     Active Substance: NAPROXEN SODIUM
     Dosage: , FOUR DAYS BETWEEN DOSESUNK
  2. ALEVE [Suspect]
     Active Substance: NAPROXEN SODIUM
     Dosage: 2 DF, EACH DAY

REACTIONS (4)
  - Intentional product misuse [None]
  - Unevaluable event [None]
  - Therapeutic response unexpected [None]
  - Drug effect incomplete [None]
